FAERS Safety Report 10752090 (Version 3)
Quarter: 2016Q1

REPORT INFORMATION
  Report Type: Spontaneous
  Country: JP (occurrence: JP)
  Receive Date: 20150130
  Receipt Date: 20160304
  Transmission Date: 20160525
  Serious: Yes (Other)
  Sender: FDA-Public Use
  Company Number: JP-JNJFOC-20141219776

PATIENT
  Age: 81 Year
  Sex: Male
  Weight: 69 kg

DRUGS (3)
  1. FLIVAS [Concomitant]
     Active Substance: NAFTOPIDIL
     Route: 048
     Dates: end: 20141224
  2. PREDNISOLONE. [Concomitant]
     Active Substance: PREDNISOLONE
     Indication: HORMONE-REFRACTORY PROSTATE CANCER
     Route: 048
     Dates: start: 20141022, end: 20141217
  3. ZYTIGA [Suspect]
     Active Substance: ABIRATERONE ACETATE
     Indication: HORMONE-REFRACTORY PROSTATE CANCER
     Route: 048
     Dates: start: 20141022, end: 20141217

REACTIONS (2)
  - Platelet count decreased [Recovering/Resolving]
  - Drug-induced liver injury [Recovering/Resolving]

NARRATIVE: CASE EVENT DATE: 20141104
